FAERS Safety Report 6392705-0 (Version None)
Quarter: 2009Q4

REPORT INFORMATION
  Report Type: 
  Country: None (occurrence: None)
  Receive Date: 20091007
  Receipt Date: 20090813
  Transmission Date: 20100525
  Serious: No
  Sender: FDA-Public Use
  Company Number: US-ALLERGAN-0910520US

PATIENT
  Age: 27 Year
  Sex: Female
  Weight: 56.689 kg

DRUGS (1)
  1. LATISSE [Suspect]
     Indication: HYPOTRICHOSIS
     Dosage: UNK, UNKNOWN
     Route: 061
     Dates: start: 20090701, end: 20090701

REACTIONS (1)
  - EYELID OEDEMA [None]
